FAERS Safety Report 9965283 (Version 1)
Quarter: 2014Q1

REPORT INFORMATION
  Report Type: Report from Study
  Country: US (occurrence: US)
  Receive Date: 20140305
  Receipt Date: 20140305
  Transmission Date: 20141002
  Serious: No
  Sender: FDA-Public Use
  Company Number: US-ABBVIE-13P-163-1125129-00

PATIENT
  Age: 52 Year
  Sex: Female

DRUGS (3)
  1. HUMIRA [Suspect]
     Indication: RHEUMATOID ARTHRITIS
     Dates: start: 201305
  2. VITAMIN D [Suspect]
     Indication: VITAMIN D DEFICIENCY
     Route: 050
  3. LEVOTHYROXINE [Concomitant]
     Indication: THYROID DISORDER

REACTIONS (2)
  - Urticaria [Not Recovered/Not Resolved]
  - Alopecia [Not Recovered/Not Resolved]
